FAERS Safety Report 5152493-2 (Version None)
Quarter: 2006Q4

REPORT INFORMATION
  Report Type: 
  Country: None (occurrence: None)
  Receive Date: 20061116
  Receipt Date: 20061106
  Transmission Date: 20070319
  Serious: Yes (Disabling)
  Sender: FDA-Public Use
  Company Number: FR-ELI_LILLY_AND_COMPANY-FR200611001040

PATIENT
  Age: 59 Year
  Sex: Female
  Weight: 87 kg

DRUGS (2)
  1. GEMZAR [Suspect]
     Indication: BREAST CANCER
     Dosage: UNK, UNK
     Route: 042
     Dates: start: 20000715
  2. TAXOTERE [Concomitant]
     Indication: BREAST CANCER
     Dosage: 100 MG, OTHER
     Route: 042
     Dates: start: 20000715

REACTIONS (3)
  - LYMPHOEDEMA [None]
  - MORPHOEA [None]
  - SCLERODERMA [None]
